FAERS Safety Report 5138241-0 (Version None)
Quarter: 2006Q4

REPORT INFORMATION
  Report Type: 
  Country: None (occurrence: None)
  Receive Date: 20061030
  Receipt Date: 20060802
  Transmission Date: 20070319
  Serious: No
  Sender: FDA-Public Use
  Company Number: US-GLAXOSMITHKLINE-A0614705A

PATIENT
  Age: 88 Year
  Sex: Male

DRUGS (5)
  1. ADVAIR HFA [Suspect]
     Route: 055
     Dates: start: 20060701
  2. DIGITEK [Concomitant]
  3. ATENOLOL [Concomitant]
  4. ASPIRIN [Concomitant]
  5. VITAMINS [Concomitant]

REACTIONS (4)
  - ANXIETY [None]
  - BLOOD PRESSURE DECREASED [None]
  - DYSPNOEA [None]
  - PALPITATIONS [None]
